FAERS Safety Report 14718377 (Version 1)
Quarter: 2018Q2

REPORT INFORMATION
  Report Type: Spontaneous
  Country: US (occurrence: US)
  Receive Date: 20180404
  Receipt Date: 20180404
  Transmission Date: 20180711
  Serious: No
  Sender: FDA-Public Use
  Company Number: US-SA-2018SA092013

PATIENT
  Age: 38 Year
  Sex: Female

DRUGS (5)
  1. EUCRISA [Concomitant]
     Active Substance: CRISABOROLE
  2. DUPIXENT [Suspect]
     Active Substance: DUPILUMAB
     Indication: DERMATITIS ATOPIC
     Route: 058
     Dates: start: 201801
  3. TRIAMCINOLONE [Concomitant]
     Active Substance: TRIAMCINOLONE
  4. VITAMIN D3 [Concomitant]
     Active Substance: CHOLECALCIFEROL
  5. ZINC OXIDE. [Concomitant]
     Active Substance: ZINC OXIDE

REACTIONS (1)
  - Oral herpes [Not Recovered/Not Resolved]
